FAERS Safety Report 7535263-7 (Version None)
Quarter: 2011Q2

REPORT INFORMATION
  Report Type: 
  Country: None (occurrence: None)
  Receive Date: 20110609
  Receipt Date: 20100209
  Transmission Date: 20111010
  Serious: No
  Sender: FDA-Public Use
  Company Number: 2010BI004742

PATIENT
  Sex: Female

DRUGS (1)
  1. TYSABRI [Suspect]
     Indication: MULTIPLE SCLEROSIS
     Route: 042
     Dates: start: 20100127, end: 20110118

REACTIONS (12)
  - PARANASAL SINUS HYPERSECRETION [None]
  - DEPRESSION [None]
  - EYE PAIN [None]
  - LOCAL SWELLING [None]
  - EAR PAIN [None]
  - VISUAL IMPAIRMENT [None]
  - UPPER RESPIRATORY TRACT CONGESTION [None]
  - MUSCULAR WEAKNESS [None]
  - MULTIPLE SCLEROSIS [None]
  - DRUG INEFFECTIVE [None]
  - BALANCE DISORDER [None]
  - NECK PAIN [None]
